FAERS Safety Report 16980202 (Version 1)
Quarter: 2019Q4

REPORT INFORMATION
  Report Type: Report from Study
  Country: MX (occurrence: MX)
  Receive Date: 20191031
  Receipt Date: 20191031
  Transmission Date: 20200122
  Serious: Yes (Other)
  Sender: FDA-Public Use
  Company Number: MX-ASTRAZENECA-2019SF53096

PATIENT
  Age: 403 Month
  Sex: Female
  Weight: 49 kg

DRUGS (2)
  1. FASLODEX [Suspect]
     Active Substance: FULVESTRANT
     Indication: BREAST CANCER FEMALE
     Dosage: 250 MG (2 SYRINGES) ONE IN EACH GLUTEUS
     Route: 030
     Dates: start: 20161212
  2. ZOLADEX [Suspect]
     Active Substance: GOSERELIN ACETATE
     Indication: BREAST CANCER FEMALE
     Dosage: 10.8 MG ONE QUARTERLY APPLICATION
     Route: 058
     Dates: start: 20161212

REACTIONS (3)
  - Spinal column injury [Unknown]
  - Metastasis [Unknown]
  - Hot flush [Not Recovered/Not Resolved]

NARRATIVE: CASE EVENT DATE: 20161212
